FAERS Safety Report 6836077-3 (Version None)
Quarter: 2010Q3

REPORT INFORMATION
  Report Type: 
  Country: None (occurrence: None)
  Receive Date: 20100713
  Receipt Date: 20100702
  Transmission Date: 20110219
  Serious: Yes (Other)
  Sender: FDA-Public Use
  Company Number: TW-ROCHE-624775

PATIENT
  Sex: Female

DRUGS (4)
  1. TRASTUZUMAB [Suspect]
     Indication: BREAST CANCER
     Route: 042
     Dates: start: 20090310, end: 20090317
  2. TRASTUZUMAB [Suspect]
     Route: 042
     Dates: start: 20090512
  3. PACLITAXEL [Suspect]
     Indication: BREAST CANCER
     Route: 042
     Dates: start: 20090310, end: 20090317
  4. PACLITAXEL [Suspect]
     Route: 042

REACTIONS (1)
  - ALANINE AMINOTRANSFERASE INCREASED [None]
